FAERS Safety Report 16897794 (Version 1)
Quarter: 2019Q4

REPORT INFORMATION
  Report Type: Spontaneous
  Country: US (occurrence: US)
  Receive Date: 20191009
  Receipt Date: 20191009
  Transmission Date: 20200122
  Serious: No
  Sender: FDA-Public Use
  Company Number: US-KARYOPHARM-2019KPT000418

PATIENT
  Sex: Female

DRUGS (4)
  1. XPOVIO [Suspect]
     Active Substance: SELINEXOR
  2. OLANZAPINE. [Concomitant]
     Active Substance: OLANZAPINE
     Dosage: 2.5 MG, QD (AT BEDTIME)
     Route: 048
  3. ZOFRAN [Concomitant]
     Active Substance: ONDANSETRON HYDROCHLORIDE
     Indication: NAUSEA
     Dosage: 8 MG, Q8H (DAYS 1 TO 4 )
     Route: 048
  4. ZOFRAN [Concomitant]
     Active Substance: ONDANSETRON HYDROCHLORIDE
     Indication: VOMITING

REACTIONS (4)
  - Nausea [Unknown]
  - Hyponatraemia [Unknown]
  - Cytopenia [Unknown]
  - Vomiting [Unknown]
